FAERS Safety Report 7083827-X (Version None)
Quarter: 2010Q4

REPORT INFORMATION
  Report Type: 
  Country: None (occurrence: None)
  Receive Date: 20101104
  Receipt Date: 20101026
  Transmission Date: 20110411
  Serious: Yes (Other)
  Sender: FDA-Public Use
  Company Number: US-SANOFI-AVENTIS-2010SA065802

PATIENT
  Age: 68 Year
  Sex: Male

DRUGS (7)
  1. PLAVIX [Suspect]
     Indication: STENT PLACEMENT
     Route: 048
     Dates: start: 20060201
  2. ASPIRIN [Suspect]
     Indication: STENT PLACEMENT
     Route: 048
     Dates: start: 20060201
  3. ALLOPURINOL [Concomitant]
  4. LYCOPENE [Concomitant]
  5. ECHINACEA SPP [Concomitant]
  6. TAMSULOSIN HYDROCHLORIDE [Concomitant]
  7. ZANTAC [Concomitant]

REACTIONS (3)
  - PLATELET COUNT DECREASED [None]
  - PROSTATIC DISORDER [None]
  - PRURITUS [None]
